FAERS Safety Report 12805558 (Version 3)
Quarter: 2016Q4

REPORT INFORMATION
  Report Type: Report from Study
  Country: US (occurrence: US)
  Receive Date: 20161004
  Receipt Date: 20161212
  Transmission Date: 20170207
  Serious: No
  Sender: FDA-Public Use
  Company Number: PHEH2016US025351

PATIENT
  Age: 35 Year
  Sex: Female
  Weight: 79.82 kg

DRUGS (5)
  1. EXTAVIA [Suspect]
     Active Substance: INTERFERON BETA-1B
     Indication: MULTIPLE SCLEROSIS
     Dosage: 0.25 ML (0.0625 MG), QOD WEEK 1-2
     Route: 058
     Dates: start: 20160922
  2. EXTAVIA [Suspect]
     Active Substance: INTERFERON BETA-1B
     Dosage: 1 ML (0.25 MG), QOD WEEK 7 PLUS
     Route: 058
     Dates: start: 20161103, end: 201611
  3. BACTRIM [Suspect]
     Active Substance: SULFAMETHOXAZOLE\TRIMETHOPRIM
     Indication: STAPHYLOCOCCAL INFECTION
     Dosage: UNK
     Route: 065
  4. EXTAVIA [Suspect]
     Active Substance: INTERFERON BETA-1B
     Dosage: 0.5 ML (0.125 MG), QOD, WEEK 3-4
     Route: 058
  5. EXTAVIA [Suspect]
     Active Substance: INTERFERON BETA-1B
     Dosage: 0.75 ML (0.1875 MG), QOD WEEK 5-6
     Route: 058

REACTIONS (16)
  - Dysarthria [Unknown]
  - Drug hypersensitivity [Unknown]
  - Injection site mass [Unknown]
  - Injection site reaction [Recovered/Resolved]
  - Alopecia [Recovering/Resolving]
  - Injection site bruising [Unknown]
  - Injection site pain [Recovered/Resolved]
  - Staphylococcal infection [Unknown]
  - White blood cell count increased [Unknown]
  - Contusion [Unknown]
  - Headache [Unknown]
  - Injection site pain [Recovered/Resolved]
  - Aphonia [Unknown]
  - Injection site pain [Recovered/Resolved]
  - Neck pain [Unknown]
  - Feeling abnormal [Unknown]

NARRATIVE: CASE EVENT DATE: 20160929
